FAERS Safety Report 12726254 (Version 1)
Quarter: 2016Q3

REPORT INFORMATION
  Report Type: Spontaneous
  Country: US (occurrence: US)
  Receive Date: 20160906
  Receipt Date: 20160906
  Transmission Date: 20161109
  Serious: Yes (Hospitalization, Disabling, Other)
  Sender: FDA-Public Use
  Company Number: None

PATIENT
  Age: 58 Year
  Sex: Female
  Weight: 67.5 kg

DRUGS (1)
  1. ZONISAMIDE 100MG 50MG 25MG GLENMARK PHARMACY [Suspect]
     Active Substance: ZONISAMIDE
     Indication: COMPLEX PARTIAL SEIZURES
     Route: 048
     Dates: start: 20160703, end: 20160831

REACTIONS (20)
  - Crying [None]
  - Hallucination, visual [None]
  - Anxiety [None]
  - Somnolence [None]
  - Tachyphrenia [None]
  - Feeling abnormal [None]
  - Depressed level of consciousness [None]
  - Speech disorder [None]
  - Dizziness [None]
  - Negative thoughts [None]
  - Delusion [None]
  - Paranoia [None]
  - Memory impairment [None]
  - Euphoric mood [None]
  - Impaired work ability [None]
  - Complex partial seizures [None]
  - Brain injury [None]
  - Fear [None]
  - Condition aggravated [None]
  - Gait disturbance [None]

NARRATIVE: CASE EVENT DATE: 20160829
